FAERS Safety Report 9524555 (Version 1)
Quarter: 2013Q3

REPORT INFORMATION
  Report Type: Spontaneous
  Country: US (occurrence: US)
  Receive Date: 20130916
  Receipt Date: 20130916
  Transmission Date: 20140515
  Serious: Yes (Other)
  Sender: FDA-Public Use
  Company Number: US-PFIZER INC-2013261612

PATIENT
  Age: 89 Year
  Sex: Female

DRUGS (3)
  1. CELEBREX [Suspect]
     Indication: OSTEOARTHRITIS
     Dosage: UNK
  2. CELEBREX [Suspect]
     Indication: OSTEOPOROSIS
  3. CELEBREX [Suspect]
     Indication: FIBROMYALGIA

REACTIONS (4)
  - Hypoacusis [Unknown]
  - Off label use [Unknown]
  - Pain [Unknown]
  - Insomnia [Unknown]
